FAERS Safety Report 18287800 (Version 1)
Quarter: 2020Q3

REPORT INFORMATION
  Report Type: Spontaneous
  Country: US (occurrence: US)
  Receive Date: 20200918
  Receipt Date: 20200918
  Transmission Date: 20201103
  Serious: Yes (Life-Threatening)
  Sender: FDA-Public Use
  Company Number: None

PATIENT
  Age: 76 Year
  Sex: Female
  Weight: 79.2 kg

DRUGS (5)
  1. DIPHENHYDRAMINE 50 MG PO [Concomitant]
     Dates: start: 20200909, end: 20200911
  2. GAMUNEX?C [Suspect]
     Active Substance: HUMAN IMMUNOGLOBULIN G
     Indication: MYASTHENIA GRAVIS
     Dosage: ?          OTHER FREQUENCY:FOR 3 DAYS Q4W;?
     Route: 042
     Dates: start: 20200909, end: 20200911
  3. METHYLPREDNISOLONE 20 MG IV PUSH [Concomitant]
     Dates: start: 20200909, end: 20200911
  4. GAMUNEX?C [Suspect]
     Active Substance: HUMAN IMMUNOGLOBULIN G
     Indication: MYASTHENIA GRAVIS
     Dosage: ?          OTHER FREQUENCY:FOR 3 DAYS Q4W;?
     Route: 042
     Dates: start: 20200909, end: 20200911
  5. ACETAMINOPHEN 1000 MG PO [Concomitant]
     Dates: start: 20200909, end: 20200911

REACTIONS (1)
  - Pulmonary oedema [None]

NARRATIVE: CASE EVENT DATE: 20200909
